FAERS Safety Report 17438016 (Version 1)
Quarter: 2020Q1

REPORT INFORMATION
  Report Type: Report from Study
  Country: None (occurrence: US)
  Receive Date: 20200220
  Receipt Date: 20200220
  Transmission Date: 20200409
  Serious: Yes (Other)
  Sender: FDA-Public Use
  Company Number: US-ABBVIE-20K-163-3279171-00

PATIENT
  Sex: Male

DRUGS (1)
  1. ANDROGEL [Suspect]
     Active Substance: TESTOSTERONE
     Indication: PRODUCT USED FOR UNKNOWN INDICATION
     Dosage: 2 PACKETS ONCE A DAY
     Route: 061
     Dates: end: 201904

REACTIONS (9)
  - Pneumonia [Unknown]
  - Fall [Unknown]
  - Medical device implantation [Unknown]
  - Blood testosterone decreased [Unknown]
  - Colon neoplasm [Unknown]
  - Gallbladder operation [Unknown]
  - Ankle fracture [Unknown]
  - Bone density decreased [Unknown]
  - Nerve injury [Unknown]
